FAERS Safety Report 17532718 (Version 1)
Quarter: 2020Q1

REPORT INFORMATION
  Report Type: Report from Study
  Country: US (occurrence: US)
  Receive Date: 20200312
  Receipt Date: 20200312
  Transmission Date: 20200409
  Serious: Yes (Other)
  Sender: FDA-Public Use
  Company Number: NVSC2020US069921

PATIENT
  Sex: Female

DRUGS (1)
  1. ILARIS [Suspect]
     Active Substance: CANAKINUMAB
     Indication: URTICARIA
     Dosage: 32 MG, Q3MO (EVERY 12 WEEKS)
     Route: 058
     Dates: start: 20180827

REACTIONS (1)
  - Respiratory tract infection [Unknown]
